FAERS Safety Report 7368611-1 (Version None)
Quarter: 2011Q1

REPORT INFORMATION
  Report Type: 
  Country: None (occurrence: None)
  Receive Date: 20110310
  Receipt Date: 20110217
  Transmission Date: 20110831
  Serious: Yes (Other)
  Sender: FDA-Public Use
  Company Number: 2011SP008115

PATIENT
  Sex: Female

DRUGS (1)
  1. IMPLANON [Suspect]
     Indication: PRODUCT USED FOR UNKNOWN INDICATION
     Dates: start: 20110106

REACTIONS (6)
  - VAGINAL DISCHARGE [None]
  - DEPRESSED MOOD [None]
  - CONDITION AGGRAVATED [None]
  - DYSPAREUNIA [None]
  - MENSTRUATION DELAYED [None]
  - BIPOLAR DISORDER [None]
